FAERS Safety Report 18994986 (Version 1)
Quarter: 2021Q1

REPORT INFORMATION
  Report Type: Report from Study
  Country: US (occurrence: US)
  Receive Date: 20210310
  Receipt Date: 20210310
  Transmission Date: 20210420
  Serious: No
  Sender: FDA-Public Use
  Company Number: US-AGIOS-2103US02560

PATIENT

DRUGS (2)
  1. TIBSOVO [Suspect]
     Active Substance: IVOSIDENIB
     Indication: CHOLANGIOCARCINOMA
     Dosage: 500 MILLIGRAM, QD (2X250 MG)
     Route: 048
     Dates: start: 20210216
  2. REMERON [Concomitant]
     Active Substance: MIRTAZAPINE

REACTIONS (6)
  - Dizziness [Recovered/Resolved]
  - Drug interaction [Unknown]
  - Off label use [Not Recovered/Not Resolved]
  - Restlessness [Unknown]
  - Sleep disorder [Unknown]
  - Anxiety [Unknown]
